FAERS Safety Report 8536470-7 (Version None)
Quarter: 2012Q3

REPORT INFORMATION
  Report Type: 
  Country: None (occurrence: None)
  Receive Date: 20120725
  Receipt Date: 20120712
  Transmission Date: 20120928
  Serious: Yes (Hospitalization, Other)
  Sender: FDA-Public Use
  Company Number: JP-ROCHE-1082928

PATIENT
  Sex: Male

DRUGS (2)
  1. TASMOLIN [Concomitant]
     Dosage: DOSAGE IS UNCERTAIN.
     Route: 064
  2. CLONAZEPAM [Suspect]
     Indication: PRODUCT USED FOR UNKNOWN INDICATION
     Dosage: DOSAGE IS UNCERTAIN.
     Route: 064

REACTIONS (3)
  - VOMITING [None]
  - DRUG WITHDRAWAL SYNDROME NEONATAL [None]
  - APNOEIC ATTACK [None]
